FAERS Safety Report 7709933 (Version 9)
Quarter: 2016Q4

REPORT INFORMATION
  Report Type: Spontaneous
  Country: US (occurrence: US)
  Receive Date: 20101214
  Receipt Date: 20161107
  Transmission Date: 20170207
  Serious: Yes (Disabling, Other)
  Sender: FDA-Public Use
  Company Number: US-ASTRAZENECA-2010SE47805

PATIENT
  Age: 872 Month
  Sex: Female

DRUGS (22)
  1. CRESTOR [Suspect]
     Active Substance: ROSUVASTATIN CALCIUM
     Route: 048
  2. SENIOR EYE VISION WITH LUTEIN AND BILBERRY [Concomitant]
  3. GLUCOSAMINE CHONDROITIN MSM [Concomitant]
  4. LEVOTHYROXINE. [Concomitant]
     Active Substance: LEVOTHYROXINE
  5. TENORMIN [Suspect]
     Active Substance: ATENOLOL
     Indication: PRODUCT USED FOR UNKNOWN INDICATION
     Route: 065
  6. VITAMIN D3 [Concomitant]
     Active Substance: CHOLECALCIFEROL
  7. LISINOPRIL. [Concomitant]
     Active Substance: LISINOPRIL
  8. CRESTOR [Suspect]
     Active Substance: ROSUVASTATIN CALCIUM
     Route: 048
  9. TRIPLE OMEGA 3-6-9 FISH, FLAX, BORAGE OILS [Concomitant]
  10. HYDROCODONE [Concomitant]
     Active Substance: HYDROCODONE
     Dosage: 5/500 AS REQUIRED
  11. GLIPIZIDE. [Concomitant]
     Active Substance: GLIPIZIDE
  12. OMEPRAZOLE. [Suspect]
     Active Substance: OMEPRAZOLE
     Route: 048
     Dates: start: 201404
  13. LEVOTHYROXINE. [Concomitant]
     Active Substance: LEVOTHYROXINE
  14. ZETIA [Concomitant]
     Active Substance: EZETIMIBE
  15. LISINOPRIL. [Concomitant]
     Active Substance: LISINOPRIL
  16. OXYBUTYNIN [Concomitant]
     Active Substance: OXYBUTYNIN
  17. VITAMIN E [Concomitant]
     Active Substance: .ALPHA.-TOCOPHEROL
  18. UROCIT-K [Concomitant]
     Active Substance: POTASSIUM CITRATE
  19. VITAMIN B12 [Concomitant]
     Active Substance: CYANOCOBALAMIN
  20. ASPIRIN. [Concomitant]
     Active Substance: ASPIRIN
  21. LEVOTHYROXINE. [Concomitant]
     Active Substance: LEVOTHYROXINE
  22. LISINOPRIL. [Concomitant]
     Active Substance: LISINOPRIL

REACTIONS (10)
  - Stress [Unknown]
  - Road traffic accident [Unknown]
  - Visual impairment [Unknown]
  - Blood cholesterol increased [Unknown]
  - Headache [Unknown]
  - Visual field defect [Unknown]
  - Renal disorder [Unknown]
  - Feeling abnormal [Unknown]
  - Drug hypersensitivity [Not Recovered/Not Resolved]
  - Drug ineffective [Unknown]

NARRATIVE: CASE EVENT DATE: 1975
